FAERS Safety Report 6338463-7 (Version None)
Quarter: 2009Q3

REPORT INFORMATION
  Report Type: 
  Country: None (occurrence: None)
  Receive Date: 20090901
  Receipt Date: 20090820
  Transmission Date: 20100115
  Serious: Yes (Hospitalization)
  Sender: FDA-Public Use
  Company Number: 430039M09USA

PATIENT
  Age: 43 Year
  Sex: Female

DRUGS (3)
  1. NOVANTRONE [Suspect]
     Indication: MULTIPLE SCLEROSIS
     Dates: start: 20080801
  2. BETASERON [Suspect]
     Indication: MULTIPLE SCLEROSIS
     Dates: start: 19931201, end: 20050807
  3. BETASERON [Suspect]
     Indication: MULTIPLE SCLEROSIS
     Dates: start: 20050811, end: 20080701

REACTIONS (1)
  - CARDIAC DISORDER [None]
